FAERS Safety Report 21104594 (Version 1)
Quarter: 2022Q3

REPORT INFORMATION
  Report Type: Report from Study
  Country: CN (occurrence: CN)
  Receive Date: 20220720
  Receipt Date: 20220720
  Transmission Date: 20221027
  Serious: Yes (Disabling)
  Sender: FDA-Public Use
  Company Number: CN-BRISTOL-MYERS SQUIBB COMPANY-2022-071824

PATIENT
  Age: 84 Year
  Sex: Male

DRUGS (1)
  1. OPDIVO [Suspect]
     Active Substance: NIVOLUMAB
     Indication: Head and neck cancer
     Route: 042
     Dates: start: 20220325

REACTIONS (3)
  - Asthenia [Unknown]
  - Gait inability [Unknown]
  - Off label use [Unknown]

NARRATIVE: CASE EVENT DATE: 20220701
